FAERS Safety Report 6250191-5 (Version None)
Quarter: 2009Q2

REPORT INFORMATION
  Report Type: 
  Country: None (occurrence: None)
  Receive Date: 20090626
  Receipt Date: 20090616
  Transmission Date: 20091009
  Serious: Yes (Other)
  Sender: FDA-Public Use
  Company Number: 2009S1010863

PATIENT
  Age: 24 Year
  Sex: Female

DRUGS (3)
  1. AMNESTEEM [Suspect]
     Dosage: 40 MG; 3 TIMES A DAY; ORAL, 11.4 MG; DAILY; ORAL
     Route: 048
     Dates: start: 20080414, end: 20081001
  2. AMNESTEEM [Suspect]
     Dosage: 40 MG; 3 TIMES A DAY; ORAL, 11.4 MG; DAILY; ORAL
     Route: 048
     Dates: start: 20090527, end: 20090610
  3. YAZ [Concomitant]

REACTIONS (3)
  - DRUG DOSE OMISSION [None]
  - DRUG EXPOSURE DURING PREGNANCY [None]
  - TREATMENT NONCOMPLIANCE [None]
